FAERS Safety Report 8247135-3 (Version None)
Quarter: 2012Q1

REPORT INFORMATION
  Report Type: 
  Country: None (occurrence: None)
  Receive Date: 20120330
  Receipt Date: 20120327
  Transmission Date: 20120608
  Serious: Yes (Other)
  Sender: FDA-Public Use
  Company Number: US-JNJFOC-20120314189

PATIENT
  Age: 26 Year
  Sex: Male
  Weight: 86.18 kg

DRUGS (2)
  1. FRESHBURST LISTERINE MOUTHWASH [Suspect]
     Dosage: CAPFUL THREE TIMES A DAY AS NEEDED
     Route: 048
     Dates: start: 20120301, end: 20120301
  2. FRESHBURST LISTERINE MOUTHWASH [Suspect]
     Indication: DENTAL DISORDER PROPHYLAXIS
     Dosage: CAPFUL THREE TIMES A DAY AS NEEDED
     Route: 048
     Dates: start: 20120301, end: 20120301

REACTIONS (1)
  - STOMATITIS [None]
